FAERS Safety Report 19298222 (Version 1)
Quarter: 2021Q2

REPORT INFORMATION
  Report Type: Spontaneous
  Country: US (occurrence: US)
  Receive Date: 20210525
  Receipt Date: 20210525
  Transmission Date: 20210717
  Serious: No
  Sender: FDA-Public Use
  Company Number: US-SUN PHARMACEUTICAL INDUSTRIES LTD-2020R1-268546

PATIENT

DRUGS (2)
  1. ABSORICA [Suspect]
     Active Substance: ISOTRETINOIN
     Indication: PRODUCT USED FOR UNKNOWN INDICATION
     Dosage: 40 MILLIGRAM UNK
     Route: 065
  2. ABSORICA [Suspect]
     Active Substance: ISOTRETINOIN
     Dosage: 60 MILLIGRAM
     Route: 065

REACTIONS (1)
  - Treatment noncompliance [Unknown]
